FAERS Safety Report 12654782 (Version 1)
Quarter: 2016Q3

REPORT INFORMATION
  Report Type: Spontaneous
  Country: US (occurrence: US)
  Receive Date: 20160816
  Receipt Date: 20160816
  Transmission Date: 20161109
  Serious: No
  Sender: FDA-Public Use
  Company Number: US-BAYER-2016-151340

PATIENT
  Age: 82 Year
  Sex: Male
  Weight: 87.53 kg

DRUGS (1)
  1. MIRALAX [Suspect]
     Active Substance: POLYETHYLENE GLYCOL 3350
     Indication: CONSTIPATION
     Dosage: 0.5 DF, QD
     Dates: start: 2014

REACTIONS (2)
  - Product use issue [None]
  - Wrong technique in product usage process [None]

NARRATIVE: CASE EVENT DATE: 2014
